FAERS Safety Report 25456829 (Version 1)
Quarter: 2025Q2

REPORT INFORMATION
  Report Type: Spontaneous
  Country: US (occurrence: US)
  Receive Date: 20250619
  Receipt Date: 20250619
  Transmission Date: 20250717
  Serious: No
  Sender: SANOFI AVENTIS
  Company Number: US-SA-2025SA173573

PATIENT
  Sex: Female
  Weight: 52.73 kg

DRUGS (5)
  1. DUPIXENT [Suspect]
     Active Substance: DUPILUMAB
     Indication: Dermatitis atopic
     Dosage: 300 MG, QOW
     Route: 058
  2. DOCUSATE SODIUM [Concomitant]
     Active Substance: DOCUSATE SODIUM
  3. D1000 [Concomitant]
  4. CALCIUM [Concomitant]
     Active Substance: CALCIUM
  5. ECOTRIN [Concomitant]
     Active Substance: ASPIRIN

REACTIONS (1)
  - Pruritus [Not Recovered/Not Resolved]
